FAERS Safety Report 4285118-9 (Version None)
Quarter: 2004Q1

REPORT INFORMATION
  Report Type: 
  Country: None (occurrence: None)
  Receive Date: 20040204
  Receipt Date: 20040122
  Transmission Date: 20041129
  Serious: Yes (Disabling)
  Sender: FDA-Public Use
  Company Number: FR-GLAXOSMITHKLINE-B0320681A

PATIENT
  Sex: Female

DRUGS (3)
  1. DEROXAT [Suspect]
     Dosage: 20MG PER DAY
     Dates: end: 20031102
  2. XANAX [Suspect]
     Dosage: 1UNIT PER DAY
     Dates: end: 20031102
  3. NORLEVO [Suspect]
     Dosage: 2UNIT PER DAY

REACTIONS (7)
  - ABDOMINAL WALL ANOMALY [None]
  - ABORTION INDUCED [None]
  - ANORECTAL DISORDER [None]
  - CHROMOSOME ABNORMALITY [None]
  - COMPLICATIONS OF MATERNAL EXPOSURE TO THERAPEUTIC DRUGS [None]
  - DRUG EXPOSURE DURING PREGNANCY [None]
  - URINARY TRACT MALFORMATION [None]
